FAERS Safety Report 9177525 (Version 2)
Quarter: 2013Q2

REPORT INFORMATION
  Report Type: Spontaneous
  Country: US (occurrence: US)
  Receive Date: 20130321
  Receipt Date: 20130520
  Transmission Date: 20140414
  Serious: No
  Sender: FDA-Public Use
  Company Number: US-PFIZER INC-2013093013

PATIENT
  Age: 51 Year
  Sex: Female

DRUGS (1)
  1. CHANTIX [Suspect]
     Dosage: STARTING MONTH PACK AND MAINTENANCE PACK 1MG TWICE DAILY
     Route: 048
     Dates: start: 20090729, end: 20090928

REACTIONS (1)
  - Depression [Unknown]
